FAERS Safety Report 18606898 (Version 2)
Quarter: 2021Q1

REPORT INFORMATION
  Report Type: Spontaneous
  Country: US (occurrence: US)
  Receive Date: 20201212
  Receipt Date: 20210127
  Transmission Date: 20210419
  Serious: No
  Sender: FDA-Public Use
  Company Number: US-LUPIN PHARMACEUTICALS INC.-2020-08666

PATIENT
  Sex: Male
  Weight: 113.38 kg

DRUGS (1)
  1. ALBUTEROL SULFATE INHALATION AEROSOL, 90 MCG/ACTUATION [Suspect]
     Active Substance: ALBUTEROL SULFATE
     Indication: CHRONIC OBSTRUCTIVE PULMONARY DISEASE
     Dosage: 8 GRAM, PRN, 2 PUFFS, AS NEEDED
     Dates: start: 20201016, end: 20201018

REACTIONS (3)
  - No adverse event [Unknown]
  - Drug dose omission by device [Unknown]
  - Device malfunction [Unknown]
